FAERS Safety Report 9381412 (Version 1)
Quarter: 2013Q3

REPORT INFORMATION
  Report Type: Spontaneous
  Country: FR (occurrence: FR)
  Receive Date: 20130703
  Receipt Date: 20130703
  Transmission Date: 20140515
  Serious: Yes (Hospitalization)
  Sender: FDA-Public Use
  Company Number: PHHY2013FR067430

PATIENT
  Sex: Female

DRUGS (3)
  1. ZOMETA [Suspect]
     Indication: METASTASES TO BONE
     Dosage: UNK UKN, UNK
     Route: 042
     Dates: start: 2008
  2. ZOMETA [Suspect]
     Dosage: UNK UKN, UNK
     Route: 042
     Dates: start: 20090910, end: 20090910
  3. AVASTIN [Concomitant]
     Indication: BREAST CANCER
     Dosage: UNK UKN, UNK
     Dates: start: 2008

REACTIONS (1)
  - Osteonecrosis of jaw [Not Recovered/Not Resolved]
